FAERS Safety Report 6240658-8 (Version None)
Quarter: 2009Q2

REPORT INFORMATION
  Report Type: 
  Country: None (occurrence: None)
  Receive Date: 20090623
  Receipt Date: 20081204
  Transmission Date: 20091009
  Serious: No
  Sender: FDA-Public Use
  Company Number: US-ASTRAZENECA-2008UW27031

PATIENT
  Sex: Female

DRUGS (1)
  1. PULMICORT RESPULES [Suspect]
     Indication: BRONCHIAL HYPERREACTIVITY
     Dosage: UNKNOWN
     Route: 055

REACTIONS (2)
  - BRONCHIAL HYPERREACTIVITY [None]
  - DRUG INEFFECTIVE [None]
